FAERS Safety Report 7480807-7 (Version None)
Quarter: 2011Q2

REPORT INFORMATION
  Report Type: 
  Country: None (occurrence: None)
  Receive Date: 20110516
  Receipt Date: 20110406
  Transmission Date: 20111010
  Serious: Yes (Other)
  Sender: FDA-Public Use
  Company Number: US-BAYER-201041417NA

PATIENT
  Age: 18 Year
  Sex: Female
  Weight: 83.9 kg

DRUGS (8)
  1. YASMIN [Suspect]
     Indication: ACNE
  2. ASPIRIN [Concomitant]
  3. KEFLEX [Concomitant]
  4. YAZ [Suspect]
     Indication: ACNE
  5. DROSPIRENONE AND ETHINYL ESTRADIOL [Suspect]
     Indication: ACNE
  6. IBUPROFEN (ADVIL) [Concomitant]
     Dosage: UNK
     Dates: start: 20080101, end: 20100101
  7. LORTAB [Concomitant]
  8. MAALOX [CALCIUM CARBONATE] [Concomitant]

REACTIONS (3)
  - CHOLECYSTITIS CHRONIC [None]
  - CHOLECYSTECTOMY [None]
  - INJURY [None]
